FAERS Safety Report 7341850-1 (Version None)
Quarter: 2011Q1

REPORT INFORMATION
  Report Type: 
  Country: None (occurrence: None)
  Receive Date: 20110309
  Receipt Date: 20110225
  Transmission Date: 20110831
  Serious: Yes (Other)
  Sender: FDA-Public Use
  Company Number: FR-ELI_LILLY_AND_COMPANY-FR201103000145

PATIENT
  Age: 34 Year
  Sex: Male
  Weight: 35 kg

DRUGS (3)
  1. CYMBALTA [Suspect]
     Indication: EAR PAIN
     Dosage: 60 MG, UNK
     Route: 048
     Dates: start: 20060101
  2. CYMBALTA [Suspect]
     Dosage: 30 MG, OTHER
  3. SOLIAN [Concomitant]
     Dates: start: 20080101

REACTIONS (36)
  - DIARRHOEA [None]
  - PALPITATIONS [None]
  - DECREASED APPETITE [None]
  - WEIGHT INCREASED [None]
  - HYPERACUSIS [None]
  - CONSTIPATION [None]
  - MUSCLE SPASMS [None]
  - DIZZINESS [None]
  - INTESTINAL OBSTRUCTION [None]
  - BURNING SENSATION [None]
  - MYALGIA [None]
  - VISION BLURRED [None]
  - ANXIETY [None]
  - CERVIX DISORDER [None]
  - THIRST [None]
  - HAEMORRHOIDS [None]
  - HALLUCINATION [None]
  - ARTHRALGIA [None]
  - DEPRESSION [None]
  - COLD SWEAT [None]
  - HYPERHIDROSIS [None]
  - BACK PAIN [None]
  - DRUG DOSE OMISSION [None]
  - TRANSAMINASES INCREASED [None]
  - PARANOIA [None]
  - HYPOVITAMINOSIS [None]
  - LIBIDO DECREASED [None]
  - BLOOD GLUCOSE INCREASED [None]
  - ARRHYTHMIA [None]
  - HYPERTENSION [None]
  - BLOOD TESTOSTERONE DECREASED [None]
  - HOT FLUSH [None]
  - DYSPEPSIA [None]
  - SLEEP DISORDER [None]
  - FATIGUE [None]
  - TRISMUS [None]
